FAERS Safety Report 8098306 (Version 4)
Quarter: 2013Q3

REPORT INFORMATION
  Report Type: Spontaneous
  Country: US (occurrence: US)
  Receive Date: 20110819
  Receipt Date: 20130828
  Transmission Date: 20140515
  Serious: Yes (Hospitalization)
  Sender: FDA-Public Use
  Company Number: US-GLAXOSMITHKLINE-A0915704A

PATIENT
  Age: 49 Year
  Sex: Female
  Weight: 75.5 kg

DRUGS (1)
  1. AVANDIA [Suspect]
     Indication: DIABETES MELLITUS
     Dosage: 4MG TWICE PER DAY
     Route: 048
     Dates: start: 1999, end: 2003

REACTIONS (3)
  - Myocardial infarction [Not Recovered/Not Resolved]
  - Staphylococcal infection [Unknown]
  - Coronary artery disease [Unknown]
